FAERS Safety Report 17022808 (Version 5)
Quarter: 2020Q2

REPORT INFORMATION
  Report Type: Report from Study
  Country: IL (occurrence: IL)
  Receive Date: 20191112
  Receipt Date: 20200415
  Transmission Date: 20200713
  Serious: Yes (Other)
  Sender: FDA-Public Use
  Company Number: IL-PFIZER INC-2019487569

PATIENT
  Age: 52 Year
  Sex: Female
  Weight: 74 kg

DRUGS (22)
  1. PIPERACILLIN AND TAZOBACTAM [Concomitant]
     Active Substance: PIPERACILLIN SODIUM\TAZOBACTAM SODIUM
     Indication: PYREXIA
     Dosage: UNK
     Dates: start: 20190713, end: 20190718
  2. PARACETAMOL [Concomitant]
     Active Substance: ACETAMINOPHEN
     Indication: PYREXIA
     Dosage: UNK
     Dates: start: 20190629
  3. PLACEBO [Suspect]
     Active Substance: UNSPECIFIED INGREDIENT
     Indication: ACUTE MYELOID LEUKAEMIA
     Dosage: ONCE DAILY CONTINUOUS
     Route: 048
     Dates: start: 20190704, end: 20190717
  4. ONDANSETRON [Concomitant]
     Active Substance: ONDANSETRON
     Indication: PROPHYLAXIS OF NAUSEA AND VOMITING
     Dosage: UNK
     Dates: start: 20190704, end: 20190707
  5. LOPERAMIDE [Concomitant]
     Active Substance: LOPERAMIDE
     Indication: DIARRHOEA
     Dosage: UNK
     Dates: start: 20190715
  6. RECTOZORIN [BENZOCAINE;BISMUTH SUBGALLATE;MENTHOL;TANNIC ACID;THYMOL I [Concomitant]
     Indication: PROCTALGIA
  7. PROMETHAZINE [Concomitant]
     Active Substance: PROMETHAZINE HYDROCHLORIDE
     Indication: CHILLS
     Dosage: UNK
     Dates: start: 20190714, end: 20190714
  8. PROMETHAZINE [Concomitant]
     Active Substance: PROMETHAZINE HYDROCHLORIDE
     Indication: PROPHYLAXIS
     Dosage: UNK
     Dates: start: 20190716, end: 20190716
  9. CYTARABINE. [Suspect]
     Active Substance: CYTARABINE
     Indication: ACUTE MYELOID LEUKAEMIA
     Dosage: 185 MG, DAILY BY CONTINUOUS INFUSION
     Route: 041
     Dates: start: 20190704, end: 20190710
  10. ACYCLOVIR [ACICLOVIR] [Concomitant]
     Active Substance: ACYCLOVIR
     Indication: PROPHYLAXIS
     Dosage: UNK
     Route: 048
     Dates: start: 20190704
  11. DEXAMETHASONE. [Concomitant]
     Active Substance: DEXAMETHASONE
     Indication: PROPHYLAXIS OF NAUSEA AND VOMITING
     Dosage: UNK
     Dates: start: 20190704, end: 20190710
  12. KCL + NACL 0.9% [Concomitant]
     Indication: HYPOKALAEMIA
     Dosage: [POTASSIUM CHLORIDE 40 MEQ]/[SODIUM CHLORIDE 0.9%], 1000 ML
     Dates: start: 20190710, end: 20190713
  13. MAGNESIUM SULPHATE [MAGNESIUM SULFATE] [Concomitant]
     Active Substance: MAGNESIUM SULFATE
     Indication: HYPOMAGNESAEMIA
     Dosage: UNK
     Dates: start: 20190716, end: 20190716
  14. DAUNORUBICIN [Suspect]
     Active Substance: DAUNORUBICIN
     Indication: ACUTE MYELOID LEUKAEMIA
     Dosage: 110 MG, DAILY BY CONTINUOUS INFUSION
     Route: 041
     Dates: start: 20190704, end: 20190706
  15. ANTI-D IMMUNOGLOBULIN [Concomitant]
     Active Substance: HUMAN RHO(D) IMMUNE GLOBULIN
     Indication: PROPHYLAXIS
     Dosage: UNK
     Dates: start: 20190716, end: 20190716
  16. POTASSIUM PHOSPHATE [POTASSIUM PHOSPHATE DIBASIC] [Concomitant]
     Indication: HYPOPHOSPHATAEMIA
     Dosage: UNK
     Dates: start: 20190716
  17. RECTOZORIN [BENZOCAINE;BISMUTH SUBGALLATE;MENTHOL;TANNIC ACID;THYMOL I [Concomitant]
     Indication: HAEMORRHOIDS
     Dosage: UNK
     Dates: start: 20190712
  18. CEFTRIAXONE. [Concomitant]
     Active Substance: CEFTRIAXONE
     Indication: PYREXIA
     Dosage: UNK
     Dates: start: 20190630, end: 20190713
  19. DIPYRONE [Concomitant]
     Active Substance: DIPYRONE
     Indication: PYREXIA
     Dosage: UNK
     Dates: start: 20190716, end: 20190716
  20. ALLOPURINOL. [Concomitant]
     Active Substance: ALLOPURINOL
     Indication: PROPHYLAXIS
     Dosage: UNK
     Dates: start: 20190630, end: 20190713
  21. PAPAVERINE [Concomitant]
     Active Substance: PAPAVERINE
     Indication: ABDOMINAL PAIN
     Dosage: UNK
     Dates: start: 20190715, end: 20190717
  22. RANITIDINE. [Concomitant]
     Active Substance: RANITIDINE
     Indication: DYSPEPSIA
     Dosage: UNK
     Dates: start: 20190713, end: 20190713

REACTIONS (2)
  - Enteritis [Recovered/Resolved]
  - Colitis [Recovered/Resolved]

NARRATIVE: CASE EVENT DATE: 20190717
